FAERS Safety Report 4706197-8 (Version None)
Quarter: 2005Q2

REPORT INFORMATION
  Report Type: 
  Country: None (occurrence: None)
  Receive Date: 20050629
  Receipt Date: 20050628
  Transmission Date: 20051028
  Serious: Yes (Life-Threatening, Hospitalization)
  Sender: FDA-Public Use
  Company Number: 200510988BWH

PATIENT
  Age: 31 Year

DRUGS (2)
  1. AVELOX [Suspect]
     Indication: SINUSITIS
     Dosage: 400 MG, QD; ORAL
     Route: 048
     Dates: start: 20050426, end: 20050502
  2. SYNTHROID [Concomitant]

REACTIONS (5)
  - CARDIAC FAILURE [None]
  - CARDIAC INFECTION [None]
  - CARDIOMYOPATHY [None]
  - HEPATIC FAILURE [None]
  - VIRAL INFECTION [None]
